FAERS Safety Report 6933535-8 (Version None)
Quarter: 2010Q3

REPORT INFORMATION
  Report Type: 
  Country: None (occurrence: None)
  Receive Date: 20100820
  Receipt Date: 20100813
  Transmission Date: 20110219
  Serious: Yes (Hospitalization, Other)
  Sender: FDA-Public Use
  Company Number: FR-BRISTOL-MYERS SQUIBB COMPANY-15242548

PATIENT
  Age: 57 Year
  Sex: Male

DRUGS (5)
  1. REYATAZ [Suspect]
     Indication: HIV INFECTION
     Route: 048
     Dates: start: 20060101, end: 20100604
  2. NORVIR [Suspect]
     Indication: HIV INFECTION
     Dates: start: 20060101, end: 20070901
  3. EMTRIVA [Suspect]
     Indication: HIV INFECTION
     Dates: start: 20060101, end: 20070901
  4. VIREAD [Suspect]
     Indication: HIV INFECTION
     Dates: start: 20060101, end: 20070901
  5. CRIXIVAN [Concomitant]
     Indication: HIV INFECTION
     Dosage: MANY YEARS

REACTIONS (3)
  - NEPHROLITHIASIS [None]
  - RENAL COLIC [None]
  - RENAL FAILURE ACUTE [None]
